FAERS Safety Report 8559384 (Version 3)
Quarter: 2013Q1

REPORT INFORMATION
  Report Type: Spontaneous
  Country: US (occurrence: US)
  Receive Date: 20120512
  Receipt Date: 20130329
  Transmission Date: 20140127
  Serious: Yes (Hospitalization)
  Sender: FDA-Public Use
  Company Number: US-ELI_LILLY_AND_COMPANY-US201108003452

PATIENT
  Sex: Female

DRUGS (8)
  1. FORTEO [Suspect]
     Indication: OSTEOPOROSIS
     Dosage: UNK UNK, QD
     Dates: start: 2010, end: 20121222
  2. FORTEO [Suspect]
     Dosage: UNK UNK, QD
     Route: 065
     Dates: start: 2010, end: 20121222
  3. SYNTHROID [Concomitant]
     Dosage: UNK
  4. PLAVIX [Concomitant]
     Dosage: UNK
  5. VITAMIN D3 [Concomitant]
     Dosage: UNK
  6. LYRICA [Concomitant]
     Dosage: UNK
  7. CRESTOR [Concomitant]
     Dosage: UNK
  8. XANAX [Concomitant]
     Dosage: UNK

REACTIONS (8)
  - Coeliac disease [Unknown]
  - Hernia [Unknown]
  - Spinal cord neoplasm [Unknown]
  - Sinus disorder [Unknown]
  - Headache [Unknown]
  - Intentional drug misuse [Unknown]
  - Pain [Unknown]
  - Musculoskeletal pain [Unknown]
